FAERS Safety Report 21683134 (Version 2)
Quarter: 2022Q4

REPORT INFORMATION
  Report Type: Spontaneous
  Country: US (occurrence: US)
  Receive Date: 20221205
  Receipt Date: 20221216
  Transmission Date: 20230113
  Serious: Yes (Hospitalization)
  Sender: FDA-Public Use
  Company Number: US-SMITH AND NEPHEW, INC-2022SMT00168

PATIENT
  Sex: Male

DRUGS (7)
  1. REGRANEX [Suspect]
     Active Substance: BECAPLERMIN
     Indication: Skin ulcer
     Dosage: A LITTLE TINY DAB, 1X/DAY
     Route: 061
     Dates: start: 20220908
  2. ASPIRIN [Concomitant]
     Active Substance: ASPIRIN
  3. CALCIUM [Concomitant]
     Active Substance: CALCIUM
  4. UNSPECIFIED DIABETES MEDICATION [Concomitant]
  5. UNSPECIFIED URINARY PILL (TO MAKE HIM GO) [Concomitant]
  6. UNSPECIFIED URINARY PILL (TO MAKE HIM NOT GO) [Concomitant]
  7. UNSPECIFIED INGREDIENT [Concomitant]
     Active Substance: UNSPECIFIED INGREDIENT

REACTIONS (3)
  - Scrotal infection [Recovered/Resolved]
  - Skin disorder [Unknown]
  - Product dose omission issue [Recovered/Resolved]

NARRATIVE: CASE EVENT DATE: 20220101
